FAERS Safety Report 16201249 (Version 1)
Quarter: 2019Q2

REPORT INFORMATION
  Report Type: Spontaneous
  Country: US (occurrence: US)
  Receive Date: 20190416
  Receipt Date: 20190416
  Transmission Date: 20190711
  Serious: No
  Sender: FDA-Public Use
  Company Number: PHEH2019US015588

PATIENT
  Sex: Male
  Weight: 145 kg

DRUGS (1)
  1. METOPROLOL. [Suspect]
     Active Substance: METOPROLOL
     Indication: PULMONARY ARTERIAL HYPERTENSION
     Dosage: 1 MG, TID, EVERY 8 HOURS
     Route: 048
     Dates: start: 20181227

REACTIONS (3)
  - Hypotension [Unknown]
  - Hypersomnia [Unknown]
  - Fatigue [Unknown]
